FAERS Safety Report 8443898-2 (Version None)
Quarter: 2012Q2

REPORT INFORMATION
  Report Type: 
  Country: None (occurrence: None)
  Receive Date: 20120618
  Receipt Date: 20120605
  Transmission Date: 20120825
  Serious: Yes (Hospitalization, Other)
  Sender: FDA-Public Use
  Company Number: US-BAYER-2012-055529

PATIENT
  Age: 19 Year
  Sex: Female
  Weight: 68.027 kg

DRUGS (8)
  1. DROSPIRENONE AND ETHINYL ESTRADIOL [Suspect]
     Indication: AMENORRHOEA
     Dosage: UNK
     Dates: start: 20080712, end: 20091011
  2. NASONEX [Concomitant]
  3. HYDROCODONE BITARTRATE AND ACETAMINOPHEN [Concomitant]
     Dosage: 5-500MG
  4. PERCOCET [Concomitant]
  5. YASMIN [Suspect]
     Indication: AMENORRHOEA
     Dosage: UNK
     Dates: start: 20060906, end: 20080711
  6. VITAMIN D [Concomitant]
     Dosage: 1000 U, DAILY
     Route: 048
  7. ALBUTEROL [Concomitant]
  8. ACETAMINOPHEN [Concomitant]

REACTIONS (10)
  - PULMONARY INFARCTION [None]
  - PULMONARY EMBOLISM [None]
  - DEEP VEIN THROMBOSIS [None]
  - PAIN [None]
  - MUSCULOSKELETAL CHEST PAIN [None]
  - DYSPNOEA [None]
  - ABDOMINAL PAIN [None]
  - CEREBROVASCULAR ACCIDENT [None]
  - INJURY [None]
  - PLEURAL EFFUSION [None]
